FAERS Safety Report 5450286-X (Version None)
Quarter: 2007Q3

REPORT INFORMATION
  Report Type: 
  Country: None (occurrence: None)
  Receive Date: 20070912
  Receipt Date: 20070905
  Transmission Date: 20080115
  Serious: Yes (Hospitalization, Other)
  Sender: FDA-Public Use
  Company Number: US-PFIZER INC-2007055652

PATIENT
  Sex: Female
  Weight: 55.454 kg

DRUGS (6)
  1. DETROL LA [Suspect]
     Indication: INCONTINENCE
     Route: 048
     Dates: start: 20060101, end: 20070702
  2. VALSARTAN [Concomitant]
     Indication: BLOOD PRESSURE
     Route: 048
  3. NEXIUM [Concomitant]
     Indication: GASTROOESOPHAGEAL REFLUX DISEASE
     Route: 048
  4. SERTRALINE [Concomitant]
     Route: 048
  5. ASPIRIN [Concomitant]
     Route: 048
  6. RESTORIL [Concomitant]
     Route: 048

REACTIONS (7)
  - BLADDER CATHETERISATION [None]
  - CONSTIPATION [None]
  - DRUG EFFECT DECREASED [None]
  - DRUG INEFFECTIVE [None]
  - DYSURIA [None]
  - MICTURITION URGENCY [None]
  - UNEVALUABLE EVENT [None]
